FAERS Safety Report 23002530 (Version 3)
Quarter: 2023Q4

REPORT INFORMATION
  Report Type: Spontaneous
  Country: IT (occurrence: IT)
  Receive Date: 20230928
  Receipt Date: 20231009
  Transmission Date: 20240110
  Serious: Yes (Death, Other)
  Sender: FDA-Public Use
  Company Number: IT-WATSON-2013-04241

PATIENT
  Age: 53 Year
  Sex: Female

DRUGS (1)
  1. LORAZEPAM [Suspect]
     Active Substance: LORAZEPAM
     Indication: Homicide
     Dosage: A DOSE ADMINISTERED , SINGLE
     Route: 065

REACTIONS (4)
  - Sedation [Fatal]
  - Drug diversion [Fatal]
  - Unresponsive to stimuli [Not Recovered/Not Resolved]
  - Anosmia [Not Recovered/Not Resolved]
